FAERS Safety Report 22132801 (Version 1)
Quarter: 2023Q1

REPORT INFORMATION
  Report Type: Spontaneous
  Country: US (occurrence: US)
  Receive Date: 20230323
  Receipt Date: 20230323
  Transmission Date: 20230417
  Serious: No
  Sender: FDA-Public Use
  Company Number: US-ALLERGAN-2300508US

PATIENT
  Sex: Female
  Weight: 57.152 kg

DRUGS (3)
  1. LINZESS [Suspect]
     Active Substance: LINACLOTIDE
     Indication: Constipation
     Dosage: 72 ?G, QD
     Route: 048
     Dates: start: 202211, end: 20230106
  2. unspecified multivitamins [Concomitant]
     Indication: Product used for unknown indication
  3. PROBIOTIC [BIFIDOBACTERIUM BIFIDUM;BIFIDOBACTERIUM LACTIS;BIFIDOBACTER [Concomitant]
     Indication: Product used for unknown indication

REACTIONS (2)
  - Product use issue [Unknown]
  - Diarrhoea [Recovered/Resolved]
